FAERS Safety Report 4479309-1 (Version None)
Quarter: 2004Q4

REPORT INFORMATION
  Report Type: 
  Country: None (occurrence: None)
  Receive Date: 20041015
  Receipt Date: 20040930
  Transmission Date: 20050328
  Serious: Yes (Other)
  Sender: FDA-Public Use
  Company Number: 2004237609CA

PATIENT

DRUGS (1)
  1. XANAX [Suspect]
     Dosage: 0.25 MG, PRN, ORAL
     Route: 048

REACTIONS (2)
  - AMNESIA [None]
  - MYOCARDIAL INFARCTION [None]
